FAERS Safety Report 23712060 (Version 1)
Quarter: 2024Q2

REPORT INFORMATION
  Report Type: Spontaneous
  Country: US (occurrence: None)
  Receive Date: 20240404
  Receipt Date: 20240404
  Transmission Date: 20240716
  Serious: Yes (Death)
  Sender: FDA-Public Use
  Company Number: None

PATIENT
  Age: 70 Year
  Sex: Female

DRUGS (1)
  1. XELODA [Suspect]
     Active Substance: CAPECITABINE
     Indication: Breast cancer
     Dates: start: 20210122, end: 20210204

REACTIONS (21)
  - Fatigue [None]
  - Weight decreased [None]
  - Decreased appetite [None]
  - Palmar-plantar erythrodysaesthesia syndrome [None]
  - Diarrhoea [None]
  - Mucosal inflammation [None]
  - Cough [None]
  - Fall [None]
  - Gait inability [None]
  - Febrile neutropenia [None]
  - Speech disorder [None]
  - Hypertension [None]
  - Toxicity to various agents [None]
  - Dihydropyrimidine dehydrogenase deficiency [None]
  - Dry eye [None]
  - Delirium [None]
  - Pharyngeal disorder [None]
  - Oesophageal disorder [None]
  - Alopecia [None]
  - Bone marrow failure [None]
  - Renal failure [None]

NARRATIVE: CASE EVENT DATE: 20210122
